FAERS Safety Report 6609125-3 (Version None)
Quarter: 2010Q1

REPORT INFORMATION
  Report Type: 
  Country: None (occurrence: None)
  Receive Date: 20100226
  Receipt Date: 20100226
  Transmission Date: 20100710
  Serious: Yes (Life-Threatening, Other)
  Sender: FDA-Public Use
  Company Number: None

PATIENT
  Age: 56 Year
  Sex: Female
  Weight: 81.6475 kg

DRUGS (1)
  1. ACTOS [Suspect]
     Indication: TYPE 2 DIABETES MELLITUS
     Dosage: 1X DAILY
     Dates: start: 20070415, end: 20080512

REACTIONS (8)
  - ABDOMINAL DISTENSION [None]
  - CARDIAC FAILURE CONGESTIVE [None]
  - CARDIOMEGALY [None]
  - DYSPNOEA [None]
  - FEELING ABNORMAL [None]
  - OEDEMA PERIPHERAL [None]
  - SWELLING FACE [None]
  - WEIGHT INCREASED [None]
